FAERS Safety Report 12820360 (Version 2)
Quarter: 2016Q4

REPORT INFORMATION
  Report Type: Report from Study
  Country: ES (occurrence: ES)
  Receive Date: 20161006
  Receipt Date: 20161207
  Transmission Date: 20170207
  Serious: Yes (Hospitalization)
  Sender: FDA-Public Use
  Company Number: ES-JNJFOC-20160927006

PATIENT

DRUGS (20)
  1. HALDOL DECANOATE [Suspect]
     Active Substance: HALOPERIDOL DECANOATE
     Indication: PROCEDURAL NAUSEA
     Route: 042
  2. DEXKETOPROFEN [Suspect]
     Active Substance: DEXKETOPROFEN
     Indication: PROCEDURAL NAUSEA
     Route: 042
  3. TRAMADOL HYDROCHLORIDE. [Suspect]
     Active Substance: TRAMADOL HYDROCHLORIDE
     Indication: PROCEDURAL PAIN
     Route: 042
  4. IBUPROFEN. [Suspect]
     Active Substance: IBUPROFEN
     Indication: PROCEDURAL VOMITING
     Route: 048
  5. DEXKETOPROFEN [Suspect]
     Active Substance: DEXKETOPROFEN
     Indication: PROCEDURAL NAUSEA
     Route: 042
  6. DEXKETOPROFEN [Suspect]
     Active Substance: DEXKETOPROFEN
     Indication: PROCEDURAL VOMITING
     Route: 042
  7. TRAMADOL HYDROCHLORIDE. [Suspect]
     Active Substance: TRAMADOL HYDROCHLORIDE
     Indication: PROCEDURAL PAIN
     Route: 042
  8. METAMIZOLE [Suspect]
     Active Substance: METAMIZOLE
     Indication: PROCEDURAL VOMITING
     Route: 042
  9. SALINE [Suspect]
     Active Substance: SODIUM CHLORIDE
     Indication: PROCEDURAL PAIN
     Dosage: 100ML CC I.E 2ML/HOUR
     Route: 042
  10. METAMIZOLE [Suspect]
     Active Substance: METAMIZOLE
     Indication: PROCEDURAL NAUSEA
     Route: 042
  11. SALINE [Suspect]
     Active Substance: SODIUM CHLORIDE
     Indication: PROCEDURAL NAUSEA
     Dosage: 100ML CC I.E 2ML/HOUR
     Route: 042
  12. DEXKETOPROFEN [Suspect]
     Active Substance: DEXKETOPROFEN
     Indication: PROCEDURAL PAIN
     Route: 042
  13. IBUPROFEN. [Suspect]
     Active Substance: IBUPROFEN
     Indication: PROCEDURAL NAUSEA
     Route: 048
  14. IBUPROFEN. [Suspect]
     Active Substance: IBUPROFEN
     Indication: PROCEDURAL PAIN
     Route: 048
  15. DEXKETOPROFEN [Suspect]
     Active Substance: DEXKETOPROFEN
     Indication: PROCEDURAL VOMITING
     Route: 042
  16. DEXKETOPROFEN [Suspect]
     Active Substance: DEXKETOPROFEN
     Indication: PROCEDURAL PAIN
     Route: 042
  17. METAMIZOLE [Suspect]
     Active Substance: METAMIZOLE
     Indication: PROCEDURAL PAIN
     Route: 042
  18. SALINE [Suspect]
     Active Substance: SODIUM CHLORIDE
     Indication: PROCEDURAL VOMITING
     Dosage: 100ML CC I.E 2ML/HOUR
     Route: 042
  19. HALDOL DECANOATE [Suspect]
     Active Substance: HALOPERIDOL DECANOATE
     Indication: PROCEDURAL VOMITING
     Route: 042
  20. TRAMADOL HYDROCHLORIDE. [Suspect]
     Active Substance: TRAMADOL HYDROCHLORIDE
     Indication: PROCEDURAL PAIN
     Route: 042

REACTIONS (9)
  - Extravasation [Unknown]
  - Phlebitis [Unknown]
  - Arterial thrombosis [Unknown]
  - Nausea [Unknown]
  - Hypersensitivity [Unknown]
  - Drug intolerance [Unknown]
  - Vomiting [Unknown]
  - Somnolence [Unknown]
  - Pruritus [Unknown]
